FAERS Safety Report 8609368-3 (Version None)
Quarter: 2012Q3

REPORT INFORMATION
  Report Type: 
  Country: None (occurrence: None)
  Receive Date: 20120821
  Receipt Date: 20120814
  Transmission Date: 20120928
  Serious: Yes (Hospitalization, Other)
  Sender: FDA-Public Use
  Company Number: US-US-EMD SERONO, INC.-7154726

PATIENT
  Sex: Female

DRUGS (2)
  1. INHALERS [Concomitant]
     Indication: CHRONIC OBSTRUCTIVE PULMONARY DISEASE
  2. REBIF [Suspect]
     Indication: PRODUCT USED FOR UNKNOWN INDICATION
     Route: 058
     Dates: start: 20111201

REACTIONS (4)
  - CHEST PAIN [None]
  - ARTHRALGIA [None]
  - OESOPHAGEAL CANDIDIASIS [None]
  - VISION BLURRED [None]
